FAERS Safety Report 15459503 (Version 1)
Quarter: 2018Q4

REPORT INFORMATION
  Report Type: Report from Study
  Country: US (occurrence: US)
  Receive Date: 20181003
  Receipt Date: 20181003
  Transmission Date: 20190204
  Serious: Yes (Other)
  Sender: FDA-Public Use
  Company Number: US-AMGEN-USASL2018134960

PATIENT
  Sex: Female

DRUGS (1)
  1. PROLIA [Suspect]
     Active Substance: DENOSUMAB
     Indication: PRODUCT USED FOR UNKNOWN INDICATION
     Dosage: UNK
     Route: 065

REACTIONS (6)
  - Influenza like illness [Recovered/Resolved]
  - Rash pruritic [Recovered/Resolved]
  - Bone pain [Recovered/Resolved]
  - Seizure [Recovered/Resolved]
  - Rash erythematous [Recovered/Resolved]
  - Myalgia [Recovered/Resolved]
